FAERS Safety Report 5632731-X (Version None)
Quarter: 2008Q1

REPORT INFORMATION
  Report Type: 
  Country: None (occurrence: None)
  Receive Date: 20080221
  Receipt Date: 20080207
  Transmission Date: 20080703
  Serious: Yes (Other)
  Sender: FDA-Public Use
  Company Number: DE-JNJFOC-20080201738

PATIENT
  Age: 13 Year
  Sex: Male

DRUGS (1)
  1. IMODIUM AD [Suspect]
     Indication: DIARRHOEA
     Route: 048

REACTIONS (4)
  - BLOOD PRESSURE INCREASED [None]
  - FACE OEDEMA [None]
  - HEART RATE INCREASED [None]
  - PALPITATIONS [None]
